FAERS Safety Report 12304911 (Version 3)
Quarter: 2016Q3

REPORT INFORMATION
  Report Type: Spontaneous
  Country: US (occurrence: US)
  Receive Date: 20160426
  Receipt Date: 20160707
  Transmission Date: 20161109
  Serious: No
  Sender: FDA-Public Use
  Company Number: US-PFIZER INC-2016188834

PATIENT
  Age: 57 Year
  Sex: Female

DRUGS (5)
  1. GABAPENTIN. [Suspect]
     Active Substance: GABAPENTIN
     Dosage: 600 MG, 2X/DAY
     Dates: start: 20160308
  2. DICLOFENAC [Concomitant]
     Active Substance: DICLOFENAC
     Dosage: 75 MG, 2X/DAY
  3. GABAPENTIN. [Suspect]
     Active Substance: GABAPENTIN
     Indication: FIBROMYALGIA
     Dosage: UNK
  4. GABAPENTIN. [Suspect]
     Active Substance: GABAPENTIN
     Dosage: 1200 MG, 1X/DAY NIGHTLY
  5. ROBAXIN [Concomitant]
     Active Substance: METHOCARBAMOL
     Dosage: 500 MG, 3X/DAY
     Dates: start: 201604

REACTIONS (1)
  - Drug ineffective for unapproved indication [Not Recovered/Not Resolved]

NARRATIVE: CASE EVENT DATE: 2010
